FAERS Safety Report 6242463-5 (Version None)
Quarter: 2009Q2

REPORT INFORMATION
  Report Type: 
  Country: None (occurrence: None)
  Receive Date: 20090622
  Receipt Date: 20090622
  Transmission Date: 20091009
  Serious: Yes (Hospitalization)
  Sender: FDA-Public Use
  Company Number: None

PATIENT
  Age: 78 Year
  Sex: Male
  Weight: 49.8957 kg

DRUGS (1)
  1. PREDNISONE [Suspect]
     Indication: RHEUMATOID ARTHRITIS
     Dosage: 1 X DAILY PO
     Route: 048
     Dates: start: 20061001, end: 20081001

REACTIONS (4)
  - HAEMORRHAGE [None]
  - LARGE INTESTINE PERFORATION [None]
  - SKIN ATROPHY [None]
  - SKIN DISCOLOURATION [None]
